FAERS Safety Report 8929862 (Version 2)
Quarter: 2013Q1

REPORT INFORMATION
  Report Type: Report from Study
  Country: AU (occurrence: AU)
  Receive Date: 20121128
  Receipt Date: 20130124
  Transmission Date: 20140127
  Serious: Yes (Other)
  Sender: FDA-Public Use
  Company Number: AU-ROCHE-1159935

PATIENT
  Age: 59 Year
  Sex: Male
  Weight: 82.17 kg

DRUGS (11)
  1. RANIBIZUMAB [Suspect]
     Indication: RETINAL VEIN OCCLUSION
     Route: 050
     Dates: start: 20121017, end: 20121017
  2. RANIBIZUMAB [Suspect]
     Route: 050
     Dates: start: 20121116, end: 20121116
  3. RANIBIZUMAB [Suspect]
     Route: 050
     Dates: start: 20121214, end: 20121214
  4. CLOPIDOGREL BISULFATE [Concomitant]
  5. PRAVASTATIN SODIUM [Concomitant]
  6. SALBUTAMOL [Concomitant]
  7. FLUTICASONE PROPIONATE/SALMETEROL XINAFOATE [Concomitant]
  8. TIOTROPIUM BROMIDE [Concomitant]
  9. METFORMIN HYDROCHLORIDE [Concomitant]
  10. ASPIRIN [Concomitant]
  11. AMLODIPINE BESILATE [Concomitant]

REACTIONS (3)
  - Hyphaema [Recovered/Resolved]
  - Intraocular pressure increased [Recovered/Resolved]
  - Vitreous haemorrhage [Recovered/Resolved]
